APPROVED DRUG PRODUCT: SODIUM CHLORIDE 0.45% IN PLASTIC CONTAINER
Active Ingredient: SODIUM CHLORIDE
Strength: 450MG/100ML
Dosage Form/Route: INJECTABLE;INJECTION
Application: N019759 | Product #001 | TE Code: AP
Applicant: HOSPIRA INC
Approved: Jun 8, 1988 | RLD: No | RS: No | Type: RX